FAERS Safety Report 7722037-7 (Version None)
Quarter: 2011Q3

REPORT INFORMATION
  Report Type: 
  Country: None (occurrence: None)
  Receive Date: 20110825
  Receipt Date: 20110816
  Transmission Date: 20111222
  Serious: Yes (Life-Threatening, Hospitalization)
  Sender: FDA-Public Use
  Company Number: 15652449

PATIENT
  Age: 72 Year
  Sex: Male

DRUGS (4)
  1. ENOXAPARIN SODIUM [Suspect]
     Indication: EMBOLISM
     Dosage: 1.26 MILLILITER; SC
     Route: 058
     Dates: start: 20110215, end: 20110222
  2. WARFARIN SODIUM [Suspect]
     Indication: EMBOLISM
     Dosage: 3 MILLIGRAM, 1 DAY, ORAL
     Route: 048
     Dates: start: 20110215, end: 20110331
  3. APIXABAN [Suspect]
     Indication: EMBOLISM
     Dosage: 10 MILLIGRAM, 1 DAY, ORAL
     Route: 048
     Dates: start: 20110215, end: 20110331
  4. PLACEBO [Suspect]
     Indication: EMBOLISM
     Dosage: ORAL
     Route: 048
     Dates: start: 20110215, end: 20110101

REACTIONS (8)
  - LUNG INFECTION [None]
  - CONFUSIONAL STATE [None]
  - SYNCOPE [None]
  - WHITE BLOOD CELL COUNT INCREASED [None]
  - CEREBRAL HAEMORRHAGE [None]
  - PROCEDURAL COMPLICATION [None]
  - LACUNAR INFARCTION [None]
  - SINUS DISORDER [None]
